FAERS Safety Report 9805439 (Version 1)
Quarter: 2014Q1

REPORT INFORMATION
  Report Type: Spontaneous
  Country: US (occurrence: US)
  Receive Date: 20140109
  Receipt Date: 20140109
  Transmission Date: 20141002
  Serious: Yes (Hospitalization)
  Sender: FDA-Public Use
  Company Number: US-JNJFOC-20140102318

PATIENT
  Age: 31 Year
  Sex: Female
  Weight: 72.58 kg

DRUGS (3)
  1. TOPAMAX [Suspect]
     Indication: CONVULSION
     Route: 048
  2. TOPAMAX [Suspect]
     Indication: CONVULSION
     Route: 048
     Dates: start: 1996
  3. LAMICTAL [Concomitant]
     Indication: CONVULSION PROPHYLAXIS
     Route: 065

REACTIONS (2)
  - Cerebrovascular accident [Unknown]
  - Epilepsy [Unknown]
